FAERS Safety Report 11748381 (Version 1)
Quarter: 2015Q4

REPORT INFORMATION
  Report Type: Spontaneous
  Country: US (occurrence: US)
  Receive Date: 20151117
  Receipt Date: 20151117
  Transmission Date: 20160304
  Serious: No
  Sender: FDA-Public Use
  Company Number: US-ASTRAZENECA-2015SF06757

PATIENT
  Sex: Male
  Weight: 108.9 kg

DRUGS (7)
  1. APIDRA [Concomitant]
     Active Substance: INSULIN GLULISINE
  2. SIMVASTATIN. [Concomitant]
     Active Substance: SIMVASTATIN
  3. FISH OIL [Concomitant]
     Active Substance: FISH OIL
     Dosage: QD
  4. TRICOR [Concomitant]
     Active Substance: FENOFIBRATE
     Dosage: 160MG OR 165MG QD
  5. KOMBIGLYZE XR [Concomitant]
     Active Substance: METFORMIN HYDROCHLORIDE\SAXAGLIPTIN HYDROCHLORIDE
     Indication: TYPE 2 DIABETES MELLITUS
     Dosage: 5 MG / 1000 MG ONCE DAILY
     Route: 048
  6. LISINOPRIL. [Concomitant]
     Active Substance: LISINOPRIL
     Dosage: 5MG Q
  7. BYDUREON [Suspect]
     Active Substance: EXENATIDE
     Indication: TYPE 2 DIABETES MELLITUS
     Route: 058

REACTIONS (4)
  - Product quality issue [Unknown]
  - Drug dose omission [Unknown]
  - Injection site haemorrhage [Unknown]
  - Injection site pain [Unknown]
